FAERS Safety Report 22936896 (Version 2)
Quarter: 2023Q4

REPORT INFORMATION
  Report Type: Report from Study
  Country: GB (occurrence: GB)
  Receive Date: 20230912
  Receipt Date: 20231108
  Transmission Date: 20240109
  Serious: Yes (Hospitalization)
  Sender: FDA-Public Use
  Company Number: GB-GENMAB-2023-00818

PATIENT
  Age: 79 Year
  Sex: Female
  Weight: 57 kg

DRUGS (25)
  1. EPCORITAMAB [Suspect]
     Active Substance: EPCORITAMAB
     Indication: Diffuse large B-cell lymphoma stage IV
     Dosage: C1D1
     Route: 058
     Dates: start: 20220223, end: 20220223
  2. EPCORITAMAB [Suspect]
     Active Substance: EPCORITAMAB
     Dosage: C1D8
     Route: 058
     Dates: start: 20220302, end: 20220302
  3. EPCORITAMAB [Suspect]
     Active Substance: EPCORITAMAB
     Dosage: C1D15-C3D22
     Route: 058
     Dates: start: 20220309, end: 20220511
  4. EPCORITAMAB [Suspect]
     Active Substance: EPCORITAMAB
     Dosage: C4D1-C9D15
     Route: 058
     Dates: start: 20220518, end: 20221123
  5. EPCORITAMAB [Suspect]
     Active Substance: EPCORITAMAB
     Dosage: C10D1-C14D1
     Route: 058
     Dates: start: 20221214, end: 20230405
  6. ACYCLOVIR [Concomitant]
     Active Substance: ACYCLOVIR
     Indication: Prophylaxis
     Dosage: 200 MILLIGRAM, TID
     Route: 048
     Dates: start: 20230106
  7. AMLODIPINE [Concomitant]
     Active Substance: AMLODIPINE BESYLATE
     Dosage: 5 MILLIGRAM, QD
     Route: 048
  8. APIXABAN [Concomitant]
     Active Substance: APIXABAN
     Dosage: 5 MILLIGRAM, BID
     Route: 048
     Dates: start: 2017, end: 20230404
  9. ATORVASTATIN [Concomitant]
     Active Substance: ATORVASTATIN
     Dosage: 10 MILLIGRAM, QD
     Route: 048
     Dates: start: 20220228
  10. EUMOVATE [Concomitant]
     Active Substance: CLOBETASONE BUTYRATE
     Indication: Pruritus
     Dosage: DOSE : APPLY THINLY TO AFFECTED AREA
     Route: 061
     Dates: start: 20230303
  11. AMOXICILLIN\CLAVULANATE POTASSIUM [Concomitant]
     Active Substance: AMOXICILLIN\CLAVULANATE POTASSIUM
     Indication: Urinary tract infection
     Dosage: 625 MILLIGRAM, TID
     Route: 048
     Dates: start: 20230405, end: 20230411
  12. AMOXICILLIN\CLAVULANATE POTASSIUM [Concomitant]
     Active Substance: AMOXICILLIN\CLAVULANATE POTASSIUM
     Dosage: 625 MILLIGRAM, TID
     Route: 048
     Dates: start: 20230429, end: 20230505
  13. D-MANNOSE [Concomitant]
     Indication: Urinary tract infection
     Dosage: 3 GRAM, BID
     Route: 048
     Dates: start: 20230303
  14. D-MANNOSE [Concomitant]
     Indication: Urinary tract infection
  15. EDOXABAN [Concomitant]
     Active Substance: EDOXABAN
     Dosage: 30 MILLIGRAM, QD
     Route: 048
     Dates: start: 20230405
  16. FLUCONAZOLE [Concomitant]
     Active Substance: FLUCONAZOLE
     Indication: Urinary tract infection
     Dosage: 50 MILLIGRAM, QD
     Route: 048
     Dates: start: 20230405, end: 20230412
  17. BECLOMETHASONE\FORMOTEROL [Concomitant]
     Active Substance: BECLOMETHASONE\FORMOTEROL
     Dosage: 6 MICROGRAM, PRN
     Dates: start: 20160802
  18. LANSOPRAZOLE [Concomitant]
     Active Substance: LANSOPRAZOLE
     Dosage: 15 MILLIGRAM, QD
     Route: 048
     Dates: start: 2017
  19. MIRTAZAPINE [Concomitant]
     Active Substance: MIRTAZAPINE
     Dosage: 30 MILLIGRAM, QD
     Route: 048
     Dates: start: 202105
  20. NITROFURANTOIN [Concomitant]
     Active Substance: NITROFURANTOIN
     Indication: Urinary tract infection
     Dosage: 50 MILLIGRAM, QID
     Route: 048
     Dates: start: 20230331, end: 20230404
  21. VENTOLIN [Concomitant]
     Active Substance: ALBUTEROL SULFATE
     Dosage: 100 MICROGRAM, PRN
     Dates: start: 201103
  22. CHLORAMPHENICOL [Concomitant]
     Active Substance: CHLORAMPHENICOL
     Indication: Blepharitis
     Dosage: 1 DROP, QID
     Route: 047
     Dates: start: 20230513, end: 20230527
  23. DERMOL [Concomitant]
     Active Substance: BENZALKONIUM CHLORIDE\CHLORHEXIDINE HYDROCHLORIDE\ISOPROPYL MYRISTATE\PARAFFIN
     Indication: Pruritus
     Dosage: 1 APPLICATION, BID
     Route: 061
     Dates: start: 20230513, end: 20230527
  24. ACETAMINOPHEN [Concomitant]
     Active Substance: ACETAMINOPHEN
     Indication: Prophylaxis
     Dosage: 1 GRAM, PRN
     Route: 048
     Dates: start: 20230510, end: 20230527
  25. PARAFFIN [Concomitant]
     Active Substance: PARAFFIN
     Indication: Pruritus
     Dosage: 1 APPLICATION, QID
     Route: 061
     Dates: start: 20230510, end: 20230527

REACTIONS (1)
  - Lower respiratory tract infection [Recovered/Resolved]

NARRATIVE: CASE EVENT DATE: 20230429
